FAERS Safety Report 8507082 (Version 3)
Quarter: 2014Q1

REPORT INFORMATION
  Report Type: Spontaneous
  Country: US (occurrence: US)
  Receive Date: 20120412
  Receipt Date: 20140320
  Transmission Date: 20141002
  Serious: No
  Sender: FDA-Public Use
  Company Number: US-ASTRAZENECA-2011SE55090

PATIENT
  Age: 79 Year
  Sex: Female

DRUGS (2)
  1. NEXIUM [Suspect]
     Route: 048
     Dates: end: 201403
  2. TOPROL XL [Suspect]
     Route: 048

REACTIONS (3)
  - Bronchitis [Unknown]
  - Road traffic accident [Unknown]
  - Drug dose omission [Not Recovered/Not Resolved]
